FAERS Safety Report 4333836-6 (Version None)
Quarter: 2004Q2

REPORT INFORMATION
  Report Type: 
  Country: None (occurrence: None)
  Receive Date: 20040406
  Receipt Date: 20040406
  Transmission Date: 20050107
  Serious: Yes (Hospitalization)
  Sender: FDA-Public Use
  Company Number: None

PATIENT
  Age: 68 Year
  Sex: Female
  Weight: 26.7622 kg

DRUGS (2)
  1. CO-TRIMOXAZOLE [Suspect]
     Indication: UPPER RESPIRATORY TRACT INFECTION
     Dosage: 160/800 MG TWICE DAIL ORAL
     Route: 048
     Dates: start: 20040226, end: 20040306
  2. LOS- DOSE BIRTH CONTROL PULLS [Concomitant]

REACTIONS (9)
  - BLOOD BILIRUBIN INCREASED [None]
  - FATIGUE [None]
  - JAUNDICE [None]
  - LETHARGY [None]
  - LIVER FUNCTION TEST ABNORMAL [None]
  - LOSS OF CONSCIOUSNESS [None]
  - ORTHOSTATIC HYPOTENSION [None]
  - PRURITUS [None]
  - WHITE BLOOD CELL COUNT DECREASED [None]
